FAERS Safety Report 8267138-2 (Version None)
Quarter: 2012Q2

REPORT INFORMATION
  Report Type: 
  Country: None (occurrence: None)
  Receive Date: 20120409
  Receipt Date: 20120402
  Transmission Date: 20120825
  Serious: Yes (Other)
  Sender: FDA-Public Use
  Company Number: NL-PFIZER INC-2012083489

PATIENT
  Age: 23 Year
  Sex: Female

DRUGS (5)
  1. AMOXICILLIN AND CLAVULANATE POTASSIUM [Concomitant]
  2. SALBUTAMOL [Concomitant]
  3. PREDNISONE [Concomitant]
  4. MEDROXYPROGESTERONE ACETATE [Suspect]
     Indication: CONTRACEPTION
  5. FLUTICASONE [Concomitant]

REACTIONS (1)
  - INJECTION SITE ATROPHY [None]
